FAERS Safety Report 23364266 (Version 1)
Quarter: 2024Q1

REPORT INFORMATION
  Report Type: Spontaneous
  Country: FR (occurrence: FR)
  Receive Date: 20240104
  Receipt Date: 20240104
  Transmission Date: 20240409
  Serious: Yes (Other)
  Sender: FDA-Public Use
  Company Number: None

PATIENT
  Age: 78 Year
  Weight: 78 kg

DRUGS (4)
  1. CISPLATIN [Suspect]
     Active Substance: CISPLATIN
     Indication: Cholangiocarcinoma
     Dosage: DOSAGE TEXT: UNIT DOSE :46.5MG,THERAPY END DATE:NASK
     Route: 042
     Dates: start: 20230105, end: 20230112
  2. CISPLATIN [Suspect]
     Active Substance: CISPLATIN
     Indication: Cholangiocarcinoma
     Dosage: A J1 ET J8 DE CHAQUE CYCLE DE 21J
     Route: 042
     Dates: start: 20230126, end: 20230223
  3. GEMCITABINE [Suspect]
     Active Substance: GEMCITABINE
     Indication: Cholangiocarcinoma
     Dosage: DOSAGE TEXT:  UNIT DOSE:1860MG,THERAPY END DATE :NASK
     Route: 042
     Dates: start: 20230105, end: 20230622
  4. IMFINZI [Suspect]
     Active Substance: DURVALUMAB
     Indication: Cholangiocarcinoma
     Dosage: DOSAGE TEXT: SOLUTION, THERAPY END DATE: NASK, FREQUENCY TIME :2 WEEKS, UNIT DOSE:1500MG,FREQUENC...
     Route: 042
     Dates: start: 20230105

REACTIONS (6)
  - Anaemia [Recovered/Resolved]
  - Vascular purpura [Recovered/Resolved]
  - Acute kidney injury [Recovered/Resolved]
  - Nausea [Recovered/Resolved]
  - Peripheral sensory neuropathy [Not Recovered/Not Resolved]
  - Decreased appetite [Recovered/Resolved]

NARRATIVE: CASE EVENT DATE: 20230101
